FAERS Safety Report 9355821 (Version 2)
Quarter: 2013Q3

REPORT INFORMATION
  Report Type: Spontaneous
  Country: US (occurrence: US)
  Receive Date: 20130619
  Receipt Date: 20130703
  Transmission Date: 20140515
  Serious: Yes (Other)
  Sender: FDA-Public Use
  Company Number: CHPA2013US009872

PATIENT
  Sex: Female

DRUGS (7)
  1. MAALOX ADV MAXIMUM STRENGTH ANTACID/ANTIGAS [Suspect]
     Indication: ABDOMINAL DISTENSION
     Dosage: 3 TSP, PRN
     Route: 048
  2. MAALOX ADV MAXIMUM STRENGTH ANTACID/ANTIGAS [Suspect]
     Indication: FLATULENCE
  3. MAALOX ANTACID/ANTIGAS MS LIQ COOL MINT [Suspect]
     Indication: ABDOMINAL DISTENSION
     Dosage: 3 TSP, PRN
     Route: 048
  4. MAALOX ANTACID/ANTIGAS MS LIQ COOL MINT [Suspect]
     Indication: FLATULENCE
  5. EXCEDRIN EXTRA STRENGTH [Suspect]
     Indication: MIGRAINE
     Dosage: 2 DF, PRN
     Route: 048
  6. EXCEDRIN EXTRA STRENGTH [Suspect]
     Indication: BACK PAIN
  7. EXCEDRIN EXTRA STRENGTH [Suspect]
     Indication: PAIN

REACTIONS (1)
  - Bronchitis [Recovered/Resolved]
